FAERS Safety Report 5490652-X (Version None)
Quarter: 2007Q4

REPORT INFORMATION
  Report Type: 
  Country: None (occurrence: None)
  Receive Date: 20071019
  Receipt Date: 20071015
  Transmission Date: 20080405
  Serious: Yes (Disabling)
  Sender: FDA-Public Use
  Company Number: IT-BAYER-200716131GDS

PATIENT
  Age: 57 Year
  Sex: Male

DRUGS (4)
  1. NEXAVAR [Suspect]
     Indication: RENAL GRANULAR CELL CARCINOMA
     Route: 048
     Dates: start: 20070116, end: 20070526
  2. OXYCONTIN [Concomitant]
     Indication: DRUG USE FOR UNKNOWN INDICATION
     Route: 048
  3. LYRICA [Concomitant]
     Indication: DRUG USE FOR UNKNOWN INDICATION
     Route: 048
  4. ZESTORETIC [Concomitant]
     Indication: DRUG USE FOR UNKNOWN INDICATION
     Route: 048

REACTIONS (1)
  - NEUROLOGICAL EXAMINATION ABNORMAL [None]
